FAERS Safety Report 18673070 (Version 1)
Quarter: 2020Q4

REPORT INFORMATION
  Report Type: Spontaneous
  Country: US (occurrence: US)
  Receive Date: 20201228
  Receipt Date: 20201228
  Transmission Date: 20210114
  Serious: Yes (Other)
  Sender: FDA-Public Use
  Company Number: US-SA-2020SA369887

PATIENT

DRUGS (2)
  1. ZANTAC [Suspect]
     Active Substance: RANITIDINE HYDROCHLORIDE
     Dosage: 75 MG, QD
  2. ZANTAC [Suspect]
     Active Substance: RANITIDINE HYDROCHLORIDE
     Indication: DYSPEPSIA
     Dosage: 25 MG, QD

REACTIONS (5)
  - Breast cancer stage II [Recovering/Resolving]
  - Uterine cancer [Unknown]
  - Bladder cancer stage II [Unknown]
  - Colorectal cancer [Unknown]
  - Colon cancer stage II [Recovering/Resolving]

NARRATIVE: CASE EVENT DATE: 20120101
